FAERS Safety Report 18458333 (Version 1)
Quarter: 2020Q4

REPORT INFORMATION
  Report Type: Spontaneous
  Country: US (occurrence: US)
  Receive Date: 20201103
  Receipt Date: 20201103
  Transmission Date: 20210114
  Serious: Yes (Hospitalization, Disabling, Other)
  Sender: FDA-Public Use
  Company Number: US-NAPPMUNDI-USA-2020-0152729

PATIENT
  Sex: Female

DRUGS (2)
  1. OXYCONTIN [Suspect]
     Active Substance: OXYCODONE HYDROCHLORIDE
     Indication: PAIN
     Dosage: 80 MG, UNK
     Route: 048
  2. OXYCODONE/ ACETAMINOPHEN TABLETS [Suspect]
     Active Substance: ACETAMINOPHEN\OXYCODONE HYDROCHLORIDE
     Indication: PRODUCT USED FOR UNKNOWN INDICATION
     Dosage: UNK
     Route: 048

REACTIONS (12)
  - Endotracheal intubation [Unknown]
  - Disability [Unknown]
  - Pain [Unknown]
  - Drug dependence [Unknown]
  - Surgery [Unknown]
  - Unresponsive to stimuli [Unknown]
  - Overdose [Unknown]
  - Fall [Unknown]
  - Dizziness [Unknown]
  - Disorientation [Unknown]
  - Emotional distress [Unknown]
  - Near death experience [Unknown]
